FAERS Safety Report 4295311-7 (Version None)
Quarter: 2004Q1

REPORT INFORMATION
  Report Type: 
  Country: None (occurrence: None)
  Receive Date: 20040211
  Receipt Date: 20040128
  Transmission Date: 20041129
  Serious: Yes (Other)
  Sender: FDA-Public Use
  Company Number: HQWYE731730JAN04

PATIENT
  Age: 73 Year
  Sex: Male

DRUGS (3)
  1. CORDAREX (AMIODARONE, TABLET) [Suspect]
     Indication: ARRHYTHMIA
     Dosage: ORAL
     Route: 048
     Dates: start: 20021001, end: 20030401
  2. UNSPECIFIED ANTIHYPERTENSIVE AGENT (UNSPECIFIED ANTHYPERTENSIVE AGENT) [Concomitant]
  3. MARCUMAR [Concomitant]

REACTIONS (3)
  - CORNEAL DEPOSITS [None]
  - HEMIANOPIA [None]
  - OPTIC ISCHAEMIC NEUROPATHY [None]
